FAERS Safety Report 8904146 (Version 1)
Quarter: 2012Q4

REPORT INFORMATION
  Report Type: 
  Country: US (occurrence: US)
  Receive Date: 20121113
  Receipt Date: 20121113
  Transmission Date: 20130627
  Serious: Yes (Other)
  Sender: FDA-Public Use
  Company Number: US-BAYER-2012-118615

PATIENT

DRUGS (7)
  1. ALEVE CAPLET/TABLET,MIDOL EXTENDED RELIEF CAPLET [Suspect]
     Indication: PAIN
     Dosage: 660 mg, ONCE
  2. MOTRIN [Suspect]
     Indication: PAIN
     Dosage: 4 DF, ONCE
  3. MOTRIN [Suspect]
     Indication: PAIN
     Dosage: 2 DF, ONCE
  4. ADVIL [Suspect]
     Indication: PAIN
     Dosage: 2 DF, ONCE
  5. MULTIVITAMIN [Concomitant]
  6. CALCIUM [Concomitant]
  7. FISH OIL [Concomitant]

REACTIONS (3)
  - Inappropriate schedule of drug administration [None]
  - Hearing impaired [Not Recovered/Not Resolved]
  - Tinnitus [Not Recovered/Not Resolved]
